FAERS Safety Report 4586984-X (Version None)
Quarter: 2005Q1

REPORT INFORMATION
  Report Type: 
  Country: None (occurrence: None)
  Receive Date: 20050218
  Receipt Date: 20050210
  Transmission Date: 20050727
  Serious: Yes (Hospitalization)
  Sender: FDA-Public Use
  Company Number: US-JNJFOC-20050203530

PATIENT
  Sex: Female
  Weight: 65.77 kg

DRUGS (4)
  1. DURAGESIC [Suspect]
     Route: 062
     Dates: start: 20041201
  2. DURAGESIC [Suspect]
     Route: 062
     Dates: start: 20041201
  3. NORVASC [Concomitant]
     Indication: BLOOD PRESSURE
     Route: 049
     Dates: start: 19950101
  4. CYMBALTA [Concomitant]
     Indication: DEPRESSION
     Route: 049
     Dates: start: 20050202

REACTIONS (6)
  - ANOREXIA [None]
  - ASTHENIA [None]
  - DEPRESSION [None]
  - FEELING ABNORMAL [None]
  - PULMONARY EMBOLISM [None]
  - SOMNOLENCE [None]
